FAERS Safety Report 14148635 (Version 1)
Quarter: 2017Q4

REPORT INFORMATION
  Report Type: Spontaneous
  Country: US (occurrence: US)
  Receive Date: 20171031
  Receipt Date: 20171031
  Transmission Date: 20180321
  Serious: Yes (Other)
  Sender: FDA-Public Use
  Company Number: None

PATIENT
  Age: 63 Year
  Sex: Female
  Weight: 73.35 kg

DRUGS (3)
  1. CONTRAVE [Suspect]
     Active Substance: BUPROPION HYDROCHLORIDE\NALTREXONE HYDROCHLORIDE
     Indication: WEIGHT CONTROL
     Route: 048
     Dates: start: 20171002, end: 20171019
  2. ASPIRIN. [Concomitant]
     Active Substance: ASPIRIN
  3. VICTOZA [Concomitant]
     Active Substance: LIRAGLUTIDE

REACTIONS (6)
  - Tongue disorder [None]
  - Dystonia [None]
  - Muscle spasms [None]
  - Somnambulism [None]
  - Loss of consciousness [None]
  - Malaise [None]

NARRATIVE: CASE EVENT DATE: 20171016
